FAERS Safety Report 13334466 (Version 1)
Quarter: 2017Q1

REPORT INFORMATION
  Report Type: Spontaneous
  Country: DE (occurrence: DE)
  Receive Date: 20170314
  Receipt Date: 20170314
  Transmission Date: 20170428
  Serious: Yes (Other)
  Sender: FDA-Public Use
  Company Number: DE-JNJFOC-20170312168

PATIENT
  Age: 61 Year
  Sex: Male
  Weight: 91 kg

DRUGS (5)
  1. LOSARTAN. [Concomitant]
     Active Substance: LOSARTAN
     Route: 065
  2. AMLODIPINE [Concomitant]
     Active Substance: AMLODIPINE BESYLATE
     Route: 065
  3. METOPROLOL. [Concomitant]
     Active Substance: METOPROLOL
     Route: 065
  4. ATORVASTATIN [Concomitant]
     Active Substance: ATORVASTATIN
     Route: 065
  5. XARELTO [Suspect]
     Active Substance: RIVAROXABAN
     Indication: PULMONARY EMBOLISM
     Route: 048
     Dates: start: 20161029, end: 20161213

REACTIONS (6)
  - Superinfection bacterial [Recovered/Resolved]
  - Mouth ulceration [Recovered/Resolved]
  - Superinfection fungal [Recovered/Resolved]
  - Pharyngeal ulceration [Recovered/Resolved]
  - Skin ulcer [Recovered/Resolved]
  - Genital ulceration [Recovered/Resolved]

NARRATIVE: CASE EVENT DATE: 20161213
